FAERS Safety Report 25189823 (Version 1)
Quarter: 2025Q2

REPORT INFORMATION
  Report Type: Spontaneous
  Country: FR (occurrence: FR)
  Receive Date: 20250411
  Receipt Date: 20250411
  Transmission Date: 20250717
  Serious: Yes (Hospitalization)
  Sender: MYLAN
  Company Number: None

PATIENT
  Age: 86 Year
  Sex: Male

DRUGS (12)
  1. AMIODARONE [Suspect]
     Active Substance: AMIODARONE
     Indication: Atrial fibrillation
  2. AMIODARONE [Suspect]
     Active Substance: AMIODARONE
     Route: 048
  3. AMIODARONE [Suspect]
     Active Substance: AMIODARONE
     Route: 048
  4. AMIODARONE [Suspect]
     Active Substance: AMIODARONE
  5. ATORVASTATIN [Suspect]
     Active Substance: ATORVASTATIN
     Indication: Blood cholesterol
  6. ATORVASTATIN [Suspect]
     Active Substance: ATORVASTATIN
     Route: 048
  7. ATORVASTATIN [Suspect]
     Active Substance: ATORVASTATIN
     Route: 048
  8. ATORVASTATIN [Suspect]
     Active Substance: ATORVASTATIN
  9. ELIQUIS [Suspect]
     Active Substance: APIXABAN
     Indication: Prophylaxis
  10. ELIQUIS [Suspect]
     Active Substance: APIXABAN
     Route: 048
  11. ELIQUIS [Suspect]
     Active Substance: APIXABAN
     Route: 048
  12. ELIQUIS [Suspect]
     Active Substance: APIXABAN

REACTIONS (1)
  - Eosinophilic pleural effusion [Not Recovered/Not Resolved]

NARRATIVE: CASE EVENT DATE: 20250114
